FAERS Safety Report 17294115 (Version 1)
Quarter: 2020Q1

REPORT INFORMATION
  Report Type: Spontaneous
  Country: US (occurrence: US)
  Receive Date: 20200102
  Receipt Date: 20200102
  Transmission Date: 20200409
  Serious: Yes (Other)
  Sender: FDA-Public Use
  Company Number: None

PATIENT
  Sex: Female

DRUGS (14)
  1. DOXYCYC MONO [Concomitant]
     Active Substance: DOXYCYCLINE
  2. EUCERIN [Concomitant]
     Active Substance: ENSULIZOLE\EUCERIN\OCTINOXATE\OCTISALATE\TITANIUM DIOXIDE\ZINC OXIDE
  3. FORTEO [Suspect]
     Active Substance: TERIPARATIDE
     Indication: SENILE OSTEOPOROSIS
     Route: 058
     Dates: start: 20180428
  4. SPIRONOLACT [Concomitant]
     Active Substance: SPIRONOLACTONE
  5. BUPROPN HCL [Concomitant]
     Active Substance: BUPROPION HYDROCHLORIDE
  6. CIMETIDINE [Concomitant]
     Active Substance: CIMETIDINE
  7. LEVOTHYROXIN [Concomitant]
     Active Substance: LEVOTHYROXINE
  8. METOPROL SUC [Concomitant]
  9. ROPINIROLE. [Concomitant]
     Active Substance: ROPINIROLE
  10. FLUTICASONE. [Concomitant]
     Active Substance: FLUTICASONE
  11. OLMESA MEDOX [Concomitant]
  12. PREDNISONE. [Concomitant]
     Active Substance: PREDNISONE
  13. DULOXETINE. [Concomitant]
     Active Substance: DULOXETINE
  14. MONTELUKAST [Concomitant]
     Active Substance: MONTELUKAST SODIUM

REACTIONS (2)
  - Blood potassium increased [None]
  - Overdose [None]
